FAERS Safety Report 9316976 (Version 1)
Quarter: 2013Q2

REPORT INFORMATION
  Report Type: Spontaneous
  Country: UA (occurrence: None)
  Receive Date: 20130523
  Receipt Date: 20130523
  Transmission Date: 20140414
  Serious: Yes (Other)
  Sender: FDA-Public Use
  Company Number: CIP-2013-00138

PATIENT
  Sex: Male

DRUGS (2)
  1. CARBOPLATIN [Suspect]
     Indication: SMALL CELL LUNG CANCER
     Dosage: AUC 5 (DAY 1), INTRAVENOUS (NOT OTHERWISE SPECIFIED)??
     Route: 042
  2. IRINOTECAN [Suspect]
     Indication: SMALL CELL LUNG CANCER
     Dosage: (70 MG/M2, DAYS 1 AND 8 EVERY 21 DAYS), UNKNOWN?

REACTIONS (3)
  - Neutropenic infection [None]
  - Diarrhoea [None]
  - Thrombosis [None]
